FAERS Safety Report 19644187 (Version 2)
Quarter: 2021Q3

REPORT INFORMATION
  Report Type: Report from Study
  Country: US (occurrence: US)
  Receive Date: 20210801
  Receipt Date: 20210825
  Transmission Date: 20211014
  Serious: No
  Sender: FDA-Public Use
  Company Number: NVSC2021US167237

PATIENT
  Age: 60 Year
  Sex: Male

DRUGS (1)
  1. ENTRESTO [Suspect]
     Active Substance: SACUBITRIL\VALSARTAN
     Indication: PRODUCT USED FOR UNKNOWN INDICATION
     Dosage: 50 MG (24/26 MG), UNKNOWN
     Route: 065
     Dates: start: 20210620

REACTIONS (4)
  - Weight decreased [Recovered/Resolved]
  - Psychomotor hyperactivity [Unknown]
  - Dyspnoea exertional [Unknown]
  - Heart rate increased [Unknown]

NARRATIVE: CASE EVENT DATE: 202107
